FAERS Safety Report 7865049 (Version 8)
Quarter: 2012Q4

REPORT INFORMATION
  Report Type: 
  Country: US (occurrence: US)
  Receive Date: 20110321
  Receipt Date: 20121227
  Transmission Date: 20130627
  Serious: Yes (Hospitalization, Other)
  Sender: FDA-Public Use
  Company Number: US-ASTRAZENECA-2011SE13831

PATIENT
  Age: 80 Year
  Sex: Female

DRUGS (9)
  1. ATACAND [Suspect]
     Route: 048
  2. ATACAND HCT [Suspect]
     Dosage: 32/25 MG, one tablet every morning
     Route: 048
  3. ATACAND HCT [Suspect]
     Dosage: 16/12.5 mg every day
     Route: 048
  4. NEXIUM [Suspect]
     Route: 048
  5. PRILOSEC [Suspect]
     Route: 048
  6. METFORMIN [Suspect]
  7. ACIPHEX [Suspect]
     Route: 065
  8. SYNTHROID [Concomitant]
  9. GLYBURIDE [Concomitant]
     Route: 048

REACTIONS (15)
  - Recurrent cancer [Unknown]
  - Throat cancer [Unknown]
  - Diabetic foot [Unknown]
  - Loss of consciousness [Unknown]
  - Cataract [Unknown]
  - Pyrexia [Unknown]
  - Pharyngeal oedema [Unknown]
  - Hypertension [Unknown]
  - Amnesia [Unknown]
  - Drug hypersensitivity [Unknown]
  - Headache [Unknown]
  - Vomiting [Unknown]
  - Dermatitis allergic [Unknown]
  - Drug dose omission [Unknown]
  - Dysphonia [Unknown]
